FAERS Safety Report 4673074-0 (Version None)
Quarter: 2005Q2

REPORT INFORMATION
  Report Type: 
  Country: None (occurrence: None)
  Receive Date: 20050523
  Receipt Date: 20050513
  Transmission Date: 20051028
  Serious: Yes (Hospitalization, Other)
  Sender: FDA-Public Use
  Company Number: 2005-05-0270

PATIENT
  Age: 43 Year
  Sex: Male
  Weight: 56.246 kg

DRUGS (9)
  1. PEG-INTRON ALFA-2B INJECTABLE POWDER [Suspect]
     Indication: HEPATITIS C
     Dosage: 100 UG Q WK SUBCUTANEOUS
     Route: 058
     Dates: start: 20050201
  2. RIBAVIRIN [Suspect]
     Indication: HEPATITIS C
     Dosage: 1000 MG ORAL
     Route: 048
     Dates: start: 20050201, end: 20050501
  3. FLUTICASONE PROPIONATE [Concomitant]
  4. GABAPENTIN [Concomitant]
  5. MAXERAN [Suspect]
     Indication: VOMITING
     Dates: start: 20050501, end: 20050501
  6. IBUPROFEN [Concomitant]
  7. SALBUTAMOL (ALBUTEROL) [Concomitant]
  8. SODIUM FUSIDATE/HYDROCORTISONE BUTYRATE [Concomitant]
  9. TRAZODONE [Concomitant]

REACTIONS (9)
  - DEHYDRATION [None]
  - DIARRHOEA [None]
  - DISEASE RECURRENCE [None]
  - DRUG DEPENDENCE [None]
  - DRUG SCREEN POSITIVE [None]
  - FAECES DISCOLOURED [None]
  - NAUSEA [None]
  - PANCYTOPENIA [None]
  - VOMITING [None]
